FAERS Safety Report 14773132 (Version 1)
Quarter: 2020Q3

REPORT INFORMATION
  Report Type: Spontaneous
  Country: FR (occurrence: FR)
  Receive Date: 20180418
  Receipt Date: 20180418
  Transmission Date: 20201104
  Serious: Yes (Hospitalization)
  Sender: FDA-Public Use
  Company Number: FR-AXELLIA-001607

PATIENT
  Age: 68 Year
  Sex: Female

DRUGS (3)
  1. VANCOMYCIN [Suspect]
     Active Substance: VANCOMYCIN
     Indication: SEPSIS
     Route: 042
     Dates: start: 20180227, end: 20180301
  2. AMIKACIN. [Suspect]
     Active Substance: AMIKACIN
     Indication: SEPSIS
     Route: 042
     Dates: start: 20180227, end: 20180301
  3. TAZOCILLINE [Suspect]
     Active Substance: PIPERACILLIN SODIUM\TAZOBACTAM SODIUM
     Indication: SEPSIS
     Dosage: STRENGTH 4 G/500 MG
     Route: 042
     Dates: start: 20180227, end: 20180301

REACTIONS (1)
  - Encephalopathy [Recovered/Resolved]

NARRATIVE: CASE EVENT DATE: 20180301
